FAERS Safety Report 13235434 (Version 4)
Quarter: 2017Q2

REPORT INFORMATION
  Report Type: Spontaneous
  Country: US (occurrence: US)
  Receive Date: 20170215
  Receipt Date: 20170508
  Transmission Date: 20170830
  Serious: Yes (Hospitalization, Disabling)
  Sender: FDA-Public Use
  Company Number: US-PFIZER INC-2017059832

PATIENT
  Age: 54 Year
  Sex: Female

DRUGS (11)
  1. HEPARIN SODIUM. [Suspect]
     Active Substance: HEPARIN SODIUM
     Dosage: 5000 IU, 3X/DAY [DAILY Q8 H ]
     Route: 058
     Dates: start: 20140407, end: 20140413
  2. ESTRACE [Concomitant]
     Active Substance: ESTRADIOL
     Dosage: 1 MG, DAILY
     Route: 048
  3. ATIVAN [Concomitant]
     Active Substance: LORAZEPAM
     Dosage: 120 MG/30ML AT 4 MG/HR
  4. ZESTRIL [Concomitant]
     Active Substance: LISINOPRIL
     Dosage: 20 MG, DAILY
     Route: 048
  5. XANAX [Concomitant]
     Active Substance: ALPRAZOLAM
     Dosage: 0.5 MG, DAILY AS NEEDED
     Route: 048
     Dates: start: 20140331
  6. DEXTROSE W/POTASSIUM CHLORIDE/SODIUM CHLORIDE [Concomitant]
     Dosage: 20 MEQ/L  30 ML/HR
  7. PRINIVIL [Concomitant]
     Active Substance: LISINOPRIL
     Dosage: 20 MG, DAILY
     Route: 048
  8. ADVAIR HFA [Concomitant]
     Active Substance: FLUTICASONE PROPIONATE\SALMETEROL XINAFOATE
     Dosage: 1 DF, 2X/DAY, 1 PUFF 2 TIMES DAILY
     Dates: start: 20130326
  9. DEXMEDETOMIDINE /01707502/ [Concomitant]
     Dosage: 0.3 MCG/KG/HR
  10. PAXIL [Concomitant]
     Active Substance: PAROXETINE HYDROCHLORIDE
     Dosage: 30 MG, DAILY
     Route: 048
  11. IPRATROPIUM BROMIDE AND ALBUTEROL SULFATE [Concomitant]
     Active Substance: ALBUTEROL SULFATE\IPRATROPIUM BROMIDE

REACTIONS (4)
  - Compartment syndrome [Unknown]
  - Heparin-induced thrombocytopenia [Unknown]
  - Gangrene [Unknown]
  - Deep vein thrombosis [Unknown]
